FAERS Safety Report 18005620 (Version 11)
Quarter: 2022Q1

REPORT INFORMATION
  Report Type: Report from Study
  Country: US (occurrence: US)
  Receive Date: 20200709
  Receipt Date: 20220226
  Transmission Date: 20220424
  Serious: Yes (Hospitalization, Other)
  Sender: FDA-Public Use
  Company Number: US-NOVARTISPH-NVSC2020US194241

PATIENT
  Age: 77 Year
  Sex: Female

DRUGS (2)
  1. ENTRESTO [Suspect]
     Active Substance: SACUBITRIL\VALSARTAN
     Indication: Cardiac failure
     Dosage: 200 MG, BID (97/103 MG)
     Route: 048
     Dates: start: 20191203
  2. ENTRESTO [Suspect]
     Active Substance: SACUBITRIL\VALSARTAN
     Indication: Cardiac failure chronic
     Dosage: 100 MG, BID
     Route: 048

REACTIONS (23)
  - Hip fracture [Unknown]
  - Fall [Not Recovered/Not Resolved]
  - Pneumonia [Recovered/Resolved]
  - Pneumonia [Recovered/Resolved]
  - Amyotrophic lateral sclerosis [Unknown]
  - Eye swelling [Unknown]
  - Heart rate decreased [Not Recovered/Not Resolved]
  - Joint swelling [Recovering/Resolving]
  - Rhinorrhoea [Unknown]
  - Feeling hot [Recovering/Resolving]
  - Musculoskeletal stiffness [Not Recovered/Not Resolved]
  - Balance disorder [Unknown]
  - Muscle tightness [Recovered/Resolved]
  - Dyspnoea [Recovering/Resolving]
  - Gait disturbance [Unknown]
  - Asthenia [Unknown]
  - Cough [Not Recovered/Not Resolved]
  - Blood pressure increased [Recovering/Resolving]
  - Secretion discharge [Unknown]
  - Grip strength decreased [Unknown]
  - Product dispensing error [Recovered/Resolved]
  - Incorrect dose administered [Unknown]
  - Product dose omission issue [Unknown]

NARRATIVE: CASE EVENT DATE: 20200201
